FAERS Safety Report 8047044-9 (Version None)
Quarter: 2012Q1

REPORT INFORMATION
  Report Type: 
  Country: None (occurrence: None)
  Receive Date: 20120116
  Receipt Date: 20120109
  Transmission Date: 20120608
  Serious: Yes (Hospitalization, Other)
  Sender: FDA-Public Use
  Company Number: US-AMGEN-USASP2012001276

PATIENT
  Age: 59 Year
  Sex: Female

DRUGS (12)
  1. COREG [Concomitant]
  2. NASACORT [Concomitant]
  3. PROCARDIA [Concomitant]
  4. RENAGEL [Concomitant]
  5. MINOXIDIL [Concomitant]
  6. SENSIPAR [Suspect]
     Indication: RENAL FAILURE CHRONIC
     Dosage: 30 MG, QD
  7. ASPIRIN [Concomitant]
  8. CLONIDINE [Concomitant]
  9. LABETALOL HCL [Concomitant]
  10. LISINOPRIL [Concomitant]
  11. LOSARTAN POTASSIUM [Concomitant]
  12. ISOSORBIDE DINITRATE [Concomitant]

REACTIONS (4)
  - TREMOR [None]
  - HOSPITALISATION [None]
  - ABDOMINAL DISCOMFORT [None]
  - DYSPNOEA [None]
